FAERS Safety Report 7127847-5 (Version None)
Quarter: 2010Q4

REPORT INFORMATION
  Report Type: 
  Country: None (occurrence: None)
  Receive Date: 20101029
  Receipt Date: 20100714
  Transmission Date: 20110411
  Serious: No
  Sender: FDA-Public Use
  Company Number: US-003241

PATIENT
  Sex: Male

DRUGS (4)
  1. FIRMAGON [Suspect]
     Indication: PRODUCT USED FOR UNKNOWN INDICATION
     Dosage: SUBCUTANEOUS, 80 MG 1X/MONTH SUBCUTANEOUS
     Route: 058
     Dates: start: 20100401, end: 20100401
  2. FIRMAGON [Suspect]
     Indication: PRODUCT USED FOR UNKNOWN INDICATION
     Dosage: SUBCUTANEOUS, 80 MG 1X/MONTH SUBCUTANEOUS
     Route: 058
     Dates: start: 20100514, end: 20100616
  3. DIOVAN [Concomitant]
  4. ALEVE [Concomitant]

REACTIONS (5)
  - BLOOD PRESSURE DECREASED [None]
  - BLOOD PRESSURE INCREASED [None]
  - FEELING ABNORMAL [None]
  - NERVOUSNESS [None]
  - VERTIGO [None]
